FAERS Safety Report 9732745 (Version 3)
Quarter: 2015Q1

REPORT INFORMATION
  Report Type: Spontaneous
  Country: US (occurrence: US)
  Receive Date: 20131204
  Receipt Date: 20150311
  Transmission Date: 20150721
  Serious: Yes (Hospitalization, Other)
  Sender: FDA-Public Use
  Company Number: US-GLAXOSMITHKLINE-A1052108A

PATIENT
  Sex: Male

DRUGS (11)
  1. PREDNISONE. [Concomitant]
     Active Substance: PREDNISONE
  2. CHERATUSSIN [Concomitant]
     Active Substance: AMMONIUM CHLORIDE\DEXTROMETHORPHAN\SODIUM CITRATE
  3. BRIMONIDINE TART [Concomitant]
  4. ALPHAGAN P [Concomitant]
     Active Substance: BRIMONIDINE TARTRATE
  5. VOTRIENT [Suspect]
     Active Substance: PAZOPANIB HYDROCHLORIDE
     Indication: PRODUCT USED FOR UNKNOWN INDICATION
     Dosage: 800 MG, QD
     Route: 048
  6. OXYCODONE [Concomitant]
     Active Substance: OXYCODONE
  7. PREVNAR [Concomitant]
     Active Substance: PNEUMOCOCCAL 7-VALENT CONJUGATE VACCINE (DIPHTHERIA CRM197 PROTEIN)
  8. DOXYCYCLINE HYCLATE. [Concomitant]
     Active Substance: DOXYCYCLINE HYCLATE
  9. LEVOTHYROXINE [Concomitant]
     Active Substance: LEVOTHYROXINE
  10. CEPHALEXIN. [Concomitant]
     Active Substance: CEPHALEXIN
  11. VALTREX [Concomitant]
     Active Substance: VALACYCLOVIR HYDROCHLORIDE

REACTIONS (2)
  - Hospitalisation [Unknown]
  - Surgery [Unknown]
